FAERS Safety Report 4955935-8 (Version None)
Quarter: 2006Q1

REPORT INFORMATION
  Report Type: 
  Country: None (occurrence: None)
  Receive Date: 20060201
  Receipt Date: 20051027
  Transmission Date: 20060701
  Serious: No
  Sender: FDA-Public Use
  Company Number: FACT0500650

PATIENT
  Age: 65 Year
  Sex: Female
  Weight: 77.1 kg

DRUGS (11)
  1. FACTIVE [Suspect]
     Indication: RESPIRATORY TRACT INFECTION BACTERIAL
     Dosage: 320 MG, QD, ORAL
     Route: 048
     Dates: start: 20051014, end: 20051021
  2. FOSAMAX [Concomitant]
  3. GLUCOSAMINE (GLUCOSAMINE) [Concomitant]
  4. CHONDROITIN A (CHONDROITIN SULFATE SODIUM) [Concomitant]
  5. FISH OIL (FISH OIL) [Concomitant]
  6. GARLIC (ALLIUM SATIVUM) [Concomitant]
  7. ZINC (ZINC) [Concomitant]
  8. CALCIUM (CALCIUM) [Concomitant]
  9. LAXATIVES [Concomitant]
  10. ENZYMES [Concomitant]
  11. VITAMINS [Concomitant]

REACTIONS (1)
  - RASH GENERALISED [None]
